FAERS Safety Report 7538480-5 (Version None)
Quarter: 2011Q2

REPORT INFORMATION
  Report Type: 
  Country: None (occurrence: None)
  Receive Date: 20110609
  Receipt Date: 20110603
  Transmission Date: 20111010
  Serious: Yes (Other)
  Sender: FDA-Public Use
  Company Number: US-GILEAD-2010-0034286

PATIENT
  Sex: Female

DRUGS (1)
  1. LETAIRIS [Suspect]
     Indication: PULMONARY ARTERIAL HYPERTENSION
     Route: 048
     Dates: start: 20090701, end: 20100421

REACTIONS (10)
  - BLOOD BILIRUBIN INCREASED [None]
  - HEPATIC CIRRHOSIS [None]
  - CORONARY ARTERY DISEASE [None]
  - UNEVALUABLE EVENT [None]
  - MENTAL STATUS CHANGES [None]
  - PORTOPULMONARY HYPERTENSION [None]
  - TYPE 2 DIABETES MELLITUS [None]
  - CARDIAC FAILURE CONGESTIVE [None]
  - LIVER DISORDER [None]
  - URINARY TRACT INFECTION [None]
